FAERS Safety Report 7504697-9 (Version None)
Quarter: 2011Q2

REPORT INFORMATION
  Report Type: 
  Country: None (occurrence: None)
  Receive Date: 20110525
  Receipt Date: 20110518
  Transmission Date: 20111010
  Serious: Yes (Hospitalization)
  Sender: FDA-Public Use
  Company Number: US-MERCK-1103USA00640

PATIENT
  Age: 68 Year
  Sex: Female
  Weight: 83 kg

DRUGS (4)
  1. FOSAMAX [Suspect]
     Route: 048
     Dates: start: 20080312, end: 20100929
  2. ALENDRONATE SODIUM [Suspect]
     Route: 048
     Dates: start: 20080312, end: 20100929
  3. FOSAMAX [Suspect]
     Indication: OSTEOPOROSIS
     Route: 048
     Dates: start: 20050101, end: 20080207
  4. CALCIUM CARBONATE [Concomitant]
     Route: 065
     Dates: start: 19990101

REACTIONS (7)
  - HYPERTENSION [None]
  - VITAMIN D DEFICIENCY [None]
  - ANKLE FRACTURE [None]
  - CALCIUM DEFICIENCY [None]
  - FEMUR FRACTURE [None]
  - FALL [None]
  - BONE DENSITY DECREASED [None]
